FAERS Safety Report 12188645 (Version 1)
Quarter: 2016Q1

REPORT INFORMATION
  Report Type: Report from Study
  Country: US (occurrence: US)
  Receive Date: 20160317
  Receipt Date: 20160317
  Transmission Date: 20160526
  Serious: Yes (Other)
  Sender: FDA-Public Use
  Company Number: US-BAYER-2016-041300

PATIENT
  Age: 64 Year
  Sex: Female
  Weight: 71.9 kg

DRUGS (2)
  1. ACETYLSALICYLIC ACID (} 100 MG) [Suspect]
     Active Substance: ASPIRIN
     Dosage: 325 MG, QD
  2. RIVAROXABAN [Interacting]
     Active Substance: RIVAROXABAN
     Indication: EMBOLISM VENOUS
     Dosage: 20 MG
     Dates: start: 20140617, end: 20140925

REACTIONS (2)
  - Epistaxis [None]
  - Labelled drug-drug interaction medication error [Recovered/Resolved]
